FAERS Safety Report 7603040-4 (Version None)
Quarter: 2011Q3

REPORT INFORMATION
  Report Type: 
  Country: None (occurrence: None)
  Receive Date: 20110712
  Receipt Date: 20110712
  Transmission Date: 20111222
  Serious: Yes (Hospitalization)
  Sender: FDA-Public Use
  Company Number: None

PATIENT
  Sex: Female
  Weight: 106 kg

DRUGS (3)
  1. BENADRYL [Interacting]
     Route: 017
  2. IBUPROFEN [Interacting]
     Route: 048
  3. FLEBOGAMMA [Suspect]
     Dosage: 50 GRAMS
     Route: 041
     Dates: start: 20110701, end: 20110701

REACTIONS (4)
  - FALL [None]
  - TRAUMATIC HAEMATOMA [None]
  - GRAND MAL CONVULSION [None]
  - DYSPNOEA [None]
